FAERS Safety Report 6900773-X (Version None)
Quarter: 2010Q3

REPORT INFORMATION
  Report Type: 
  Country: None (occurrence: None)
  Receive Date: 20100803
  Receipt Date: 20100727
  Transmission Date: 20110219
  Serious: Yes (Other)
  Sender: FDA-Public Use
  Company Number: US-RB-012882-10

PATIENT
  Age: 38 Year
  Sex: Male

DRUGS (3)
  1. SUBOXONE [Suspect]
     Indication: PRODUCT USED FOR UNKNOWN INDICATION
     Dosage: UNKNOWN DOSING DETAILS
     Route: 065
  2. XANAX [Suspect]
     Indication: PRODUCT USED FOR UNKNOWN INDICATION
     Dosage: UNKNOWN DOSING DETAILS
     Route: 065
  3. FLEXERIL [Suspect]
     Indication: PRODUCT USED FOR UNKNOWN INDICATION
     Dosage: UNKNOWN DOSING DETAILS
     Route: 065

REACTIONS (10)
  - DEPRESSION [None]
  - DRUG EFFECT DECREASED [None]
  - DYSARTHRIA [None]
  - EMOTIONAL DISTRESS [None]
  - FEELING ABNORMAL [None]
  - MEMORY IMPAIRMENT [None]
  - NECK PAIN [None]
  - PAIN IN EXTREMITY [None]
  - PANIC ATTACK [None]
  - SUICIDAL IDEATION [None]
